FAERS Safety Report 14133912 (Version 12)
Quarter: 2025Q2

REPORT INFORMATION
  Report Type: Spontaneous
  Country: US (occurrence: US)
  Receive Date: 20171027
  Receipt Date: 20250422
  Transmission Date: 20250716
  Serious: Yes (Hospitalization, Other)
  Sender: PFIZER
  Company Number: US-PFIZER INC-2017303087

PATIENT
  Age: 75 Year
  Sex: Female

DRUGS (2)
  1. XELJANZ XR [Suspect]
     Active Substance: TOFACITINIB CITRATE
     Indication: Rheumatoid arthritis
     Route: 048
     Dates: start: 201707
  2. XELJANZ XR [Suspect]
     Active Substance: TOFACITINIB CITRATE
     Route: 048

REACTIONS (12)
  - Fall [Unknown]
  - Pelvic fracture [Unknown]
  - Seizure [Not Recovered/Not Resolved]
  - Blindness unilateral [Unknown]
  - Glaucoma [Unknown]
  - Headache [Unknown]
  - Weight decreased [Unknown]
  - Irritable bowel syndrome [Unknown]
  - Cognitive disorder [Unknown]
  - Muscular weakness [Unknown]
  - Impaired driving ability [Unknown]
  - Illness [Unknown]
